FAERS Safety Report 12641767 (Version 1)
Quarter: 2016Q3

REPORT INFORMATION
  Report Type: Report from Study
  Country: CA (occurrence: CA)
  Receive Date: 20160810
  Receipt Date: 20160810
  Transmission Date: 20161109
  Serious: Yes (Other)
  Sender: FDA-Public Use
  Company Number: CA-009507513-1608CAN003808

PATIENT
  Sex: Female

DRUGS (1)
  1. TEMODAL [Suspect]
     Active Substance: TEMOZOLOMIDE
     Indication: GLIOBLASTOMA MULTIFORME
     Dosage: 295 MG, OD 5 DAYS PER 28 DAYS (STRENGTH: 250 MG, 5 MG, 20 MG)
     Route: 048
     Dates: start: 201509

REACTIONS (1)
  - Neoplasm recurrence [Unknown]
